FAERS Safety Report 9234775 (Version 2)
Quarter: 2013Q2

REPORT INFORMATION
  Report Type: Spontaneous
  Country: US (occurrence: US)
  Receive Date: 20130416
  Receipt Date: 20130418
  Transmission Date: 20140414
  Serious: Yes (Hospitalization, Other)
  Sender: FDA-Public Use
  Company Number: US-BAXTER-2013BAX013376

PATIENT
  Age: 56 Year
  Sex: Female

DRUGS (2)
  1. DIANEAL LOW CALCIUM [Suspect]
     Indication: PERITONEAL DIALYSIS
     Route: 033
     Dates: start: 2009
  2. EXTRANEAL [Suspect]
     Indication: PERITONEAL DIALYSIS
     Route: 033
     Dates: start: 201303

REACTIONS (14)
  - Multimorbidity [Unknown]
  - Convulsion [Unknown]
  - Unresponsive to stimuli [Unknown]
  - Swelling [Unknown]
  - Ultrafiltration failure [Unknown]
  - Gastric infection [Recovered/Resolved]
  - Sepsis [Recovered/Resolved]
  - Lung infection [Recovered/Resolved]
  - General physical health deterioration [Unknown]
  - Blood sodium decreased [Unknown]
  - Blood potassium decreased [Unknown]
  - Pulmonary oedema [Unknown]
  - Malnutrition [Unknown]
  - Decreased appetite [Unknown]
